FAERS Safety Report 5802555-9 (Version None)
Quarter: 2008Q2

REPORT INFORMATION
  Report Type: 
  Country: None (occurrence: None)
  Receive Date: 20080630
  Receipt Date: 20070910
  Transmission Date: 20081010
  Serious: Yes (Hospitalization)
  Sender: FDA-Public Use
  Company Number: ENC200700155

PATIENT
  Age: 59 Year
  Sex: Male
  Weight: 64.4 kg

DRUGS (12)
  1. ARGATROBAN [Suspect]
     Indication: HEPARIN-INDUCED THROMBOCYTOPENIA
     Dosage: 2 MCG/KG/MIN, INTRAVENOUS
     Route: 042
     Dates: start: 20070807
  2. NORVASC /00972401/ (AMLODIPINE) [Concomitant]
  3. METOPROLOL TARTRATE [Concomitant]
  4. LASIX [Concomitant]
  5. PREDNISONE [Concomitant]
  6. DEXAMETHASONE TAB [Concomitant]
  7. PROTONIX /01263201/ (PANTOPRAZOLE) [Concomitant]
  8. SENNA /00142201/ (SENNA ALEXANDRINA) [Concomitant]
  9. COLACE (DOCUSATE SODIUM) [Concomitant]
  10. INSULIN (INSULIN) [Concomitant]
  11. ARANESP [Concomitant]
  12. COUMADIN /000`4802/ (WARFARIN SODIUM) [Concomitant]

REACTIONS (2)
  - ACTIVATED PARTIAL THROMBOPLASTIN TIME SHORTENED [None]
  - PLATELET COUNT ABNORMAL [None]
